FAERS Safety Report 11053633 (Version 3)
Quarter: 2015Q2

REPORT INFORMATION
  Report Type: Spontaneous
  Country: US (occurrence: US)
  Receive Date: 20150421
  Receipt Date: 20150526
  Transmission Date: 20150821
  Serious: No
  Sender: FDA-Public Use
  Company Number: US-JNJFOC-20141019868

PATIENT
  Age: 63 Year
  Sex: Female
  Weight: 61.24 kg

DRUGS (5)
  1. LORAZEPAM. [Concomitant]
     Active Substance: LORAZEPAM
     Dosage: AT 5 PM
     Route: 065
  2. RISPERDAL CONSTA [Suspect]
     Active Substance: RISPERIDONE
     Indication: SCHIZOPHRENIA
     Route: 030
     Dates: start: 20141106
  3. RISPERDAL CONSTA [Suspect]
     Active Substance: RISPERIDONE
     Indication: SCHIZOPHRENIA
     Route: 030
     Dates: start: 20141030
  4. TRAZODONE [Concomitant]
     Active Substance: TRAZODONE HYDROCHLORIDE
     Route: 065
  5. RISPERDAL CONSTA [Suspect]
     Active Substance: RISPERIDONE
     Indication: SCHIZOPHRENIA
     Route: 030
     Dates: start: 20141029

REACTIONS (3)
  - Syringe issue [Unknown]
  - Product physical issue [Unknown]
  - Drug dose omission [Unknown]

NARRATIVE: CASE EVENT DATE: 20141024
